FAERS Safety Report 17544909 (Version 1)
Quarter: 2020Q1

REPORT INFORMATION
  Report Type: Spontaneous
  Country: US (occurrence: US)
  Receive Date: 20200316
  Receipt Date: 20200316
  Transmission Date: 20200409
  Serious: No
  Sender: FDA-Public Use
  Company Number: US-PFIZER INC-2020111472

PATIENT

DRUGS (20)
  1. VERSED [Suspect]
     Active Substance: MIDAZOLAM HYDROCHLORIDE
     Dosage: UNK
  2. GLUCOSAMINE SULPHATE [Concomitant]
     Active Substance: GLUCOSAMINE
     Dosage: 2000 MG, DAILY (2 IN 1 D)
     Route: 048
  3. LEVOTHYROXINE SODIUM. [Concomitant]
     Active Substance: LEVOTHYROXINE SODIUM
     Dosage: 50 UG, DAILY
  4. MELOXICAM. [Concomitant]
     Active Substance: MELOXICAM
     Dosage: 15 MG, DAILY (1 IN 1 D)
     Route: 048
  5. PENTOTHAL [Suspect]
     Active Substance: THIOPENTAL SODIUM
     Dosage: UNK
  6. FERROUS SULPHATE [FERROUS SULFATE] [Concomitant]
     Active Substance: FERROUS SULFATE
     Dosage: 325 MG, DAILY (1 IN 1 D)
     Route: 048
  7. PROPOFOL. [Suspect]
     Active Substance: PROPOFOL
     Dosage: UNK
  8. TESSALON [Suspect]
     Active Substance: BENZONATATE
     Dosage: UNK
  9. OMEPRAZOLE. [Concomitant]
     Active Substance: OMEPRAZOLE
     Dosage: 20 MG, DAILY (1 IN 1 D)
     Route: 048
  10. BENAZEPRIL HCL [Concomitant]
     Active Substance: BENAZEPRIL HYDROCHLORIDE
     Dosage: 20 MG, DAILY (1 IN 1 D)
     Route: 048
  11. FISH OIL [COD-LIVER OIL] [Concomitant]
     Dosage: 1000 MG, DAILY (1 IN 1 D)
     Route: 048
  12. REFRESH OPTIVE [Concomitant]
     Active Substance: CARBOXYMETHYLCELLULOSE SODIUM\GLYCERIN
     Dosage: UNK (OPHTHALMIC SOLUTION)
     Route: 047
  13. STRESS [Concomitant]
     Dosage: UNK
     Route: 048
  14. INDERAL [Suspect]
     Active Substance: PROPRANOLOL HYDROCHLORIDE
     Dosage: UNK
  15. MONTELUKAST SODIUM. [Concomitant]
     Active Substance: MONTELUKAST SODIUM
     Dosage: 10 MG, DAILY (1 IN 1 D)
     Route: 048
  16. BIAXIN [Suspect]
     Active Substance: CLARITHROMYCIN
     Dosage: UNK
  17. HYDROCHOROTHIAZIDE [Concomitant]
     Active Substance: HYDROCHLOROTHIAZIDE
     Dosage: 37.5 MG, DAILY (ONE AND A HALF DAILY)
     Route: 048
  18. LYRICA [Concomitant]
     Active Substance: PREGABALIN
     Dosage: 15 MG, UNK (1 IN 3 D)
     Route: 048
  19. VITAMIN D3 [Concomitant]
     Active Substance: CHOLECALCIFEROL
     Dosage: 1000 MG, DAILY (1 IN 1 D)
     Route: 048
  20. VITAMIN B [Concomitant]
     Active Substance: VITAMIN B
     Dosage: 1000 UG, DAILY (1 IN 1 D)
     Route: 048

REACTIONS (1)
  - Drug hypersensitivity [Not Recovered/Not Resolved]
